FAERS Safety Report 8965253 (Version 2)
Quarter: 2013Q1

REPORT INFORMATION
  Report Type: Report from Study
  Country: CA (occurrence: CA)
  Receive Date: 20121214
  Receipt Date: 20130207
  Transmission Date: 20140127
  Serious: Yes (Hospitalization, Other)
  Sender: FDA-Public Use
  Company Number: PHHY2012CA115364

PATIENT
  Age: 89 Year
  Sex: Female
  Weight: 53 kg

DRUGS (19)
  1. ACLASTA/ZOLEDRONATE [Suspect]
     Indication: OSTEOPOROSIS
     Dosage: 5 MG / 100 ML
     Route: 042
     Dates: start: 20081203
  2. ACLASTA/ZOLEDRONATE [Suspect]
     Dosage: 5 MG / 100 ML
     Route: 042
     Dates: start: 20121210
  3. VITAMIN D [Concomitant]
     Dosage: 500 MG, DAILY
     Dates: start: 20060628
  4. CALCITE [Concomitant]
     Dosage: DAILY
  5. APO ROSUVASTATIN [Concomitant]
     Dosage: 1 DF, QD IN THE MORNING
  6. PMS AMLODIPINE [Concomitant]
     Dosage: 1 DF, QD IN THE MORNING
  7. ASAPHEN [Concomitant]
     Dosage: 1 DF, QD AT BREAKFAST
  8. RIVA ACETAM 500 [Concomitant]
     Dosage: UNK UKN, UNK
  9. TEVA VENLAFAXINE XR [Concomitant]
     Dosage: 1 DF, QD AT BREAKFAST
  10. PMS SENNOSIDES [Concomitant]
     Dosage: 2 DF, QD AT BEDTIME
  11. SYNTHROID [Concomitant]
     Dosage: 1 DF, QD IN THE MORNING
  12. APO ALENDRONAT [Concomitant]
     Dosage: UNK UKN, UNK
  13. PRESERVISION LUTEIN [Concomitant]
     Dosage: 1 DF, BID
  14. PMS RISPERIDONE [Concomitant]
     Dosage: UNK UKN, UNK
  15. APO BRIMONIDINE P [Concomitant]
     Dosage: UNK UKN, UNK
  16. APO TIMOP [Concomitant]
     Dosage: UNK UKN, UNK
  17. APO LATANOPROST [Concomitant]
     Dosage: UNK UKN, UNK
  18. EGOZINC [Concomitant]
     Dosage: UNK UKN, UNK
  19. PMS-BISACODYL [Concomitant]
     Dosage: UNK UKN, UNK

REACTIONS (4)
  - Fall [Recovered/Resolved]
  - Foot fracture [Recovered/Resolved]
  - Spinal fracture [Recovered/Resolved]
  - Foot deformity [Unknown]
